FAERS Safety Report 8986879 (Version 1)
Quarter: 2012Q4

REPORT INFORMATION
  Report Type: 
  Country: GB (occurrence: GB)
  Receive Date: 20121226
  Receipt Date: 20121226
  Transmission Date: 20130627
  Serious: Yes (Life-Threatening, Hospitalization)
  Sender: FDA-Public Use
  Company Number: GB-ROCHE-1172713

PATIENT
  Age: 38 Year
  Sex: Male
  Weight: 126.8 kg

DRUGS (6)
  1. ROACTEMRA [Suspect]
     Indication: RHEUMATOID ARTHRITIS
     Route: 042
     Dates: start: 20121120
  2. METHOTREXATE [Concomitant]
     Route: 048
  3. ADCAL-D3 [Concomitant]
     Route: 048
  4. ALENDRONIC ACID [Concomitant]
     Route: 048
  5. FOLIC ACID [Concomitant]
     Route: 048
  6. ZOMORPH [Concomitant]
     Route: 048

REACTIONS (4)
  - Pancreatitis acute [Unknown]
  - Hyperlipidaemia [Unknown]
  - Multi-organ failure [Unknown]
  - Fatigue [Unknown]
